FAERS Safety Report 25463715 (Version 2)
Quarter: 2025Q2

REPORT INFORMATION
  Report Type: Spontaneous
  Country: TR (occurrence: TR)
  Receive Date: 20250621
  Receipt Date: 20250627
  Transmission Date: 20250717
  Serious: Yes (Life-Threatening)
  Sender: ASTELLAS
  Company Number: TR-GILEAD-2025-0717671

PATIENT
  Age: 17 Year
  Sex: Male
  Weight: 80 kg

DRUGS (3)
  1. AMPHOTERICIN B [Suspect]
     Active Substance: AMPHOTERICIN B
     Indication: Systemic mycosis
     Route: 042
     Dates: start: 20250324, end: 20250324
  2. PHENIRAMINE [Concomitant]
     Active Substance: PHENIRAMINE
     Indication: Product used for unknown indication
     Route: 065
  3. PAROL [Concomitant]
     Active Substance: ACETAMINOPHEN
     Indication: Product used for unknown indication
     Route: 065

REACTIONS (4)
  - Hypoaesthesia [Recovered/Resolved]
  - Dyspnoea [Recovered/Resolved]
  - Flushing [Recovered/Resolved]
  - Pruritus [Recovered/Resolved]

NARRATIVE: CASE EVENT DATE: 20250324
